FAERS Safety Report 9458409 (Version 1)
Quarter: 2013Q3

REPORT INFORMATION
  Report Type: Spontaneous
  Country: BR (occurrence: BR)
  Receive Date: 20130814
  Receipt Date: 20130814
  Transmission Date: 20140515
  Serious: Yes (Other)
  Sender: FDA-Public Use
  Company Number: BR-SANOFI-AVENTIS-2013SA079530

PATIENT
  Age: 43 Year
  Sex: Female
  Weight: 47 kg

DRUGS (9)
  1. LANTUS [Suspect]
     Indication: TYPE 2 DIABETES MELLITUS
     Route: 058
     Dates: start: 2007
  2. DEVICE NOS [Concomitant]
     Indication: DEVICE THERAPY
  3. TEBONIN [Concomitant]
     Indication: CARDIAC DISORDER
     Dosage: FREQUENCY: EACH 2 MONTHS?STRENGTH: 80 MG
     Route: 048
     Dates: start: 2011
  4. CRESTOR [Concomitant]
     Indication: CARDIAC DISORDER
     Dosage: STRENGTH: 10MG
     Route: 048
     Dates: start: 2011
  5. LOSARTAN POTASSIUM [Concomitant]
     Indication: CARDIAC DISORDER
     Dosage: STRENGTH: 25 MG
     Route: 048
     Dates: start: 2011
  6. SOMALGIN CARDIO [Concomitant]
     Indication: CARDIAC DISORDER
     Dosage: STRENGTH: 100MG
     Route: 048
     Dates: start: 2011
  7. PLAVIX [Concomitant]
     Indication: CARDIAC DISORDER
     Dosage: STRENGTH: 75 MG
     Route: 048
     Dates: start: 2011
  8. CARVEDILOL [Concomitant]
     Indication: CARDIAC DISORDER
     Dosage: STRENGTH: 6.25 MG
     Route: 048
     Dates: start: 2011
  9. NOVORAPID [Concomitant]
     Indication: TYPE 2 DIABETES MELLITUS
     Dosage: BEFORE MEALS
     Route: 058
     Dates: start: 2011

REACTIONS (5)
  - Deafness unilateral [Not Recovered/Not Resolved]
  - Deafness unilateral [Not Recovered/Not Resolved]
  - Stent placement [Unknown]
  - Hypoacusis [Not Recovered/Not Resolved]
  - Cardiac disorder [Not Recovered/Not Resolved]
